FAERS Safety Report 4684037-3 (Version None)
Quarter: 2005Q2

REPORT INFORMATION
  Report Type: 
  Country: None (occurrence: None)
  Receive Date: 20050602
  Receipt Date: 20050120
  Transmission Date: 20051028
  Serious: No
  Sender: FDA-Public Use
  Company Number: USA050188871

PATIENT
  Age: 77 Year
  Sex: Male
  Weight: 86 kg

DRUGS (5)
  1. CYMBALTA [Suspect]
     Indication: DEPRESSION
     Dosage: 90 MG IN THE MORNING
     Dates: start: 20041001
  2. ZYPREXA [Concomitant]
  3. LITHIUM [Concomitant]
  4. LEXAPRO [Concomitant]
  5. AMBIEN [Concomitant]

REACTIONS (3)
  - FALL [None]
  - PRESCRIBED OVERDOSE [None]
  - SLEEP WALKING [None]
